FAERS Safety Report 7460806-1 (Version None)
Quarter: 2011Q2

REPORT INFORMATION
  Report Type: 
  Country: None (occurrence: None)
  Receive Date: 20110505
  Receipt Date: 20110503
  Transmission Date: 20111010
  Serious: Yes (Hospitalization)
  Sender: FDA-Public Use
  Company Number: US-B.I. PHARMACEUTICALS,INC./RIDGEFIELD-2011-BP-05006BP

PATIENT
  Age: 82 Year
  Sex: Male
  Weight: 102.51 kg

DRUGS (9)
  1. ASPIRIN [Concomitant]
     Dosage: 81 MG
  2. NOVOLOG [Concomitant]
  3. DITIALZEM [Concomitant]
     Dosage: 180 MG
  4. FURSEMIDE [Concomitant]
  5. LISINOPRIL [Concomitant]
  6. COUMADIN [Concomitant]
  7. PRADAXA [Suspect]
     Indication: ATRIAL FIBRILLATION
     Dosage: 300 MG
     Route: 048
     Dates: start: 20110128, end: 20110217
  8. ALLOPURINOL [Concomitant]
  9. SPIRIVA [Concomitant]
     Indication: CHRONIC OBSTRUCTIVE PULMONARY DISEASE
     Dosage: 18 MCG
     Route: 055
     Dates: start: 20050101

REACTIONS (4)
  - EPISTAXIS [None]
  - OXYGEN SATURATION DECREASED [None]
  - PNEUMONIA [None]
  - HEART RATE INCREASED [None]
